FAERS Safety Report 24196137 (Version 1)
Quarter: 2024Q3

REPORT INFORMATION
  Report Type: Spontaneous
  Country: US (occurrence: US)
  Receive Date: 20240809
  Receipt Date: 20240809
  Transmission Date: 20241017
  Serious: Yes (Hospitalization, Other)
  Sender: PURDUE
  Company Number: US-PURDUE-USA-2024-0311247

PATIENT
  Age: 29 Year
  Sex: Female

DRUGS (2)
  1. DRONABINOL [Suspect]
     Active Substance: DRONABINOL
     Indication: Product used for unknown indication
     Dosage: UNK
     Route: 048
  2. METHAMPHETAMINE [Suspect]
     Active Substance: METHAMPHETAMINE
     Indication: Product used for unknown indication
     Dosage: UNK
     Route: 065

REACTIONS (6)
  - Gonorrhoea [Unknown]
  - Syphilis [Unknown]
  - Chlamydial infection [Unknown]
  - Trichomoniasis [Unknown]
  - Maternal exposure during pregnancy [Unknown]
  - Substance use [Unknown]
